FAERS Safety Report 17239211 (Version 1)
Quarter: 2020Q1

REPORT INFORMATION
  Report Type: Spontaneous
  Country: US (occurrence: US)
  Receive Date: 20200106
  Receipt Date: 20200106
  Transmission Date: 20200409
  Serious: No
  Sender: FDA-Public Use
  Company Number: US-ABBVIE-19K-163-2790343-00

PATIENT
  Sex: Male

DRUGS (2)
  1. IMBRUVICA [Suspect]
     Active Substance: IBRUTINIB
     Indication: CHRONIC LYMPHOCYTIC LEUKAEMIA
     Route: 048
     Dates: start: 20180511
  2. VENCLEXTA [Suspect]
     Active Substance: VENETOCLAX
     Indication: CHRONIC LYMPHOCYTIC LEUKAEMIA
     Route: 048
     Dates: start: 20180524

REACTIONS (14)
  - Skin wound [Unknown]
  - Skin ulcer [Unknown]
  - Nodule [Unknown]
  - Impaired healing [Unknown]
  - Diarrhoea [Unknown]
  - Scratch [Unknown]
  - Skin infection [Unknown]
  - Upper respiratory tract infection [Unknown]
  - Fatigue [Unknown]
  - White blood cell count increased [Unknown]
  - Splenomegaly [Unknown]
  - Skin abrasion [Unknown]
  - Lymphadenopathy [Unknown]
  - Skin disorder [Unknown]
